FAERS Safety Report 9819437 (Version 4)
Quarter: 2014Q2

REPORT INFORMATION
  Report Type: Report from Study
  Country: US (occurrence: US)
  Receive Date: 20140115
  Receipt Date: 20140423
  Transmission Date: 20141212
  Serious: Yes (Hospitalization, Other)
  Sender: FDA-Public Use
  Company Number: US-BRISTOL-MYERS SQUIBB COMPANY-20000816

PATIENT
  Age: 14 Year
  Sex: Male
  Weight: 75.5 kg

DRUGS (32)
  1. DASATINIB [Suspect]
     Indication: ACUTE LYMPHOCYTIC LEUKAEMIA
     Dosage: 19SEP2013-11NOV2013:120MG,11NOV2013-ONG:115MG
     Route: 048
     Dates: start: 20130919
  2. ETOPOSIDE [Suspect]
     Indication: ACUTE LYMPHOCYTIC LEUKAEMIA
     Dates: start: 20131226
  3. L-ASPARAGINASE [Suspect]
     Indication: ACUTE LYMPHOCYTIC LEUKAEMIA
     Dates: start: 20131226
  4. CYTARABINE [Suspect]
     Indication: ACUTE LYMPHOCYTIC LEUKAEMIA
     Dates: start: 20131226
  5. METHOTREXATE [Suspect]
     Indication: ACUTE LYMPHOCYTIC LEUKAEMIA
     Dates: start: 20131226
  6. HYDROCORTISONE [Suspect]
     Indication: ACUTE LYMPHOCYTIC LEUKAEMIA
     Dates: start: 20131226
  7. DEXAMETHASONE [Suspect]
     Indication: ACUTE LYMPHOCYTIC LEUKAEMIA
     Dates: start: 20131226
  8. DOXORUBICIN [Suspect]
     Indication: ACUTE LYMPHOCYTIC LEUKAEMIA
     Dates: start: 20140204, end: 20140225
  9. CALCIUM CHLORIDE [Concomitant]
     Dosage: CALCIUM CHLORIDE -500MG CHEW
     Route: 048
  10. CEFEPIME HCL [Concomitant]
     Route: 042
  11. CHOLECALCIFEROL [Concomitant]
     Dosage: 1DF:2000UNITS
     Route: 048
  12. FILGRASTIM [Concomitant]
     Route: 042
  13. GABAPENTIN [Concomitant]
     Route: 048
  14. GENTAMICIN [Concomitant]
     Dosage: GENTAMICIN PIGGYBACK
     Route: 042
  15. MAGNESIUM OXIDE [Concomitant]
     Route: 048
  16. POTASSIUM CHLORIDE [Concomitant]
     Route: 048
  17. BACTRIM DS [Concomitant]
     Route: 048
  18. TYLENOL [Concomitant]
     Route: 048
  19. BENADRYL [Concomitant]
     Dosage: BENADRYL INJ
     Route: 042
  20. ZOFRAN [Concomitant]
     Dosage: ZOFRAN INJ
     Route: 042
  21. OXYCODONE [Concomitant]
     Route: 048
  22. CLOTRIMAZOLE [Concomitant]
     Dosage: 1 DF:1 LOZENGE-10MG
     Route: 048
  23. PENICILLIN V POTASSIUM [Concomitant]
     Dosage: PENICILLIN V POTASSIUM 250MG ORAL TABS
     Route: 048
  24. POLYETHYLENE GLYCOL 3350 [Concomitant]
     Dosage: POLYETHYLENE GLYCOL 3350 - ORAL POWDER FOR RECONSTITUTION
     Route: 048
  25. BENADRYL [Concomitant]
     Route: 048
  26. SULFAMETHOXAZOLE + TRIMETHOPRIM [Concomitant]
     Dosage: 1DF=1TAB,SAT AND SUN
     Route: 048
  27. ALBUTEROL [Concomitant]
  28. CALCIUM CARBONATE [Concomitant]
     Route: 048
  29. VITAMIN D3 [Concomitant]
     Route: 048
  30. DIPHENHYDRAMINE [Concomitant]
     Route: 048
  31. ONDANSETRON [Concomitant]
     Route: 048
  32. THIOGUANINE [Concomitant]
     Route: 048

REACTIONS (5)
  - Febrile neutropenia [Recovering/Resolving]
  - Platelet count decreased [Recovered/Resolved]
  - Sepsis [Recovered/Resolved]
  - Hypophosphataemia [Recovered/Resolved]
  - Peripheral motor neuropathy [Not Recovered/Not Resolved]
